FAERS Safety Report 6176543-X (Version None)
Quarter: 2009Q2

REPORT INFORMATION
  Report Type: 
  Country: None (occurrence: None)
  Receive Date: 20090501
  Receipt Date: 20090424
  Transmission Date: 20091009
  Serious: Yes (Other)
  Sender: FDA-Public Use
  Company Number: JP-ALLERGAN-0906014US

PATIENT

DRUGS (1)
  1. ALESION SYRUP [Suspect]
     Indication: RHINITIS ALLERGIC
     Dosage: UNK, UNKNOWN
     Route: 048

REACTIONS (2)
  - AGITATION [None]
  - HALLUCINATION [None]
